FAERS Safety Report 9187284 (Version 1)
Quarter: 2013Q1

REPORT INFORMATION
  Report Type: Report from Study
  Country: AT (occurrence: AT)
  Receive Date: 20130325
  Receipt Date: 20130325
  Transmission Date: 20140127
  Serious: Yes (Hospitalization)
  Sender: FDA-Public Use
  Company Number: AT-ROCHE-1203801

PATIENT
  Age: 78 Year
  Sex: Female

DRUGS (7)
  1. XELODA [Suspect]
     Indication: COLORECTAL CANCER METASTATIC
     Dosage: CYCLE 1
     Route: 065
     Dates: start: 20060714, end: 20060727
  2. XELODA [Suspect]
     Dosage: CYCLE 2
     Route: 065
     Dates: start: 20060804, end: 20060817
  3. XELODA [Suspect]
     Dosage: CYCLE 3
     Route: 065
     Dates: start: 20060825, end: 20060907
  4. XELODA [Suspect]
     Dosage: CYCLE 4
     Route: 065
     Dates: start: 20060919, end: 20061002
  5. XELODA [Suspect]
     Dosage: CYCLE 5
     Route: 065
     Dates: start: 20061009, end: 20061023
  6. XELODA [Suspect]
     Dosage: CYCLE 6
     Route: 065
     Dates: start: 20061030, end: 20061113
  7. OXALIPLATIN [Suspect]
     Indication: COLORECTAL CANCER METASTATIC
     Route: 065

REACTIONS (1)
  - Oropharyngeal spasm [Unknown]
